FAERS Safety Report 13429097 (Version 2)
Quarter: 2017Q2

REPORT INFORMATION
  Report Type: Spontaneous
  Country: US (occurrence: US)
  Receive Date: 20170411
  Receipt Date: 20170619
  Transmission Date: 20170830
  Serious: Yes (Other)
  Sender: FDA-Public Use
  Company Number: US-ELI_LILLY_AND_COMPANY-US201704002524

PATIENT
  Age: 55 Year
  Sex: Male
  Weight: 91 kg

DRUGS (12)
  1. NEULASTA [Concomitant]
     Active Substance: PEGFILGRASTIM
     Dosage: 6 MG, UNK
     Route: 065
     Dates: start: 20170501
  2. LARTRUVO [Suspect]
     Active Substance: OLARATUMAB
     Dosage: 12 MG/KG, UNK
     Route: 042
     Dates: start: 20170508
  3. LARTRUVO [Suspect]
     Active Substance: OLARATUMAB
     Dosage: 12 MG/KG, UNK
     Route: 042
     Dates: start: 20170519
  4. DOXORUBICIN [Concomitant]
     Active Substance: DOXORUBICIN
     Dosage: 64 MG/KG, UNK
     Route: 065
     Dates: start: 20170501
  5. LARTRUVO [Suspect]
     Active Substance: OLARATUMAB
     Dosage: 12 MG/KG, UNK
     Route: 042
     Dates: start: 20170413
  6. NEULASTA [Concomitant]
     Active Substance: PEGFILGRASTIM
     Indication: PRODUCT USED FOR UNKNOWN INDICATION
     Dosage: 6 MG, UNK
     Route: 065
     Dates: start: 20170330
  7. NEULASTA [Concomitant]
     Active Substance: PEGFILGRASTIM
     Dosage: 6 MG, UNK
     Route: 065
     Dates: start: 20170519
  8. DOXORUBICIN [Concomitant]
     Active Substance: DOXORUBICIN
     Dosage: 64 MG/KG, UNK
     Route: 065
     Dates: start: 20170519
  9. LARTRUVO [Suspect]
     Active Substance: OLARATUMAB
     Indication: PRODUCT USED FOR UNKNOWN INDICATION
     Dosage: 15 MG/KG, UNK
     Route: 042
     Dates: start: 20170330
  10. LARTRUVO [Suspect]
     Active Substance: OLARATUMAB
     Dosage: 12 MG/KG, UNK
     Route: 042
     Dates: start: 20170526
  11. DOXORUBICIN [Concomitant]
     Active Substance: DOXORUBICIN
     Indication: PRODUCT USED FOR UNKNOWN INDICATION
     Dosage: 75 MG/KG, UNK
     Route: 065
     Dates: start: 20170330
  12. LARTRUVO [Suspect]
     Active Substance: OLARATUMAB
     Dosage: 12 MG/KG, UNK
     Route: 042
     Dates: start: 20170501

REACTIONS (2)
  - White blood cell count decreased [Unknown]
  - Neutrophil count decreased [Recovering/Resolving]

NARRATIVE: CASE EVENT DATE: 20170406
